FAERS Safety Report 7969090-3 (Version None)
Quarter: 2011Q4

REPORT INFORMATION
  Report Type: 
  Country: None (occurrence: None)
  Receive Date: 20111209
  Receipt Date: 20111128
  Transmission Date: 20120403
  Serious: Yes (Hospitalization, Other)
  Sender: FDA-Public Use
  Company Number: JP-ROCHE-1009681

PATIENT
  Sex: Female
  Weight: 44 kg

DRUGS (3)
  1. XELODA [Suspect]
     Indication: COLON CANCER METASTATIC
     Dosage: IT IS ONE ADMINISTERING WEEKLY HOLIDAY MEDICINE FOR TWO WEEKS
     Route: 048
     Dates: start: 20110401, end: 20110501
  2. OXALIPLATIN [Concomitant]
     Indication: COLON CANCER METASTATIC
     Dosage: DOSAGE IS UNCERTAIN.
     Route: 041
  3. XELODA [Suspect]
     Route: 048
     Dates: start: 20110503, end: 20110522

REACTIONS (4)
  - PALMAR-PLANTAR ERYTHRODYSAESTHESIA SYNDROME [None]
  - SKIN FISSURES [None]
  - SKIN ULCER [None]
  - HYPERKERATOSIS [None]
